FAERS Safety Report 5065851-1 (Version None)
Quarter: 2006Q3

REPORT INFORMATION
  Report Type: 
  Country: None (occurrence: None)
  Receive Date: 20060728
  Receipt Date: 20060728
  Transmission Date: 20061208
  Serious: Yes (Hospitalization)
  Sender: FDA-Public Use
  Company Number: None

PATIENT
  Age: 75 Year
  Sex: Female

DRUGS (8)
  1. METHYLCELLULOSE (METHYLCELLULOSE)   SUGAR FREE ORANGE [Suspect]
     Indication: GASTROINTESTINAL DISORDER
     Dosage: 1 SEE TEXT / IN THE MORNING
     Dates: start: 19910101, end: 20060101
  2. THYROXINE SODIUM [Concomitant]
  3. LISINOPRIL [Concomitant]
  4. METOPROLOL SUCCINATE [Concomitant]
  5. ATORVASTATIN CALCIUM [Concomitant]
  6. CALCIUM CARBONATE [Concomitant]
  7. ASPIRIN [Concomitant]
  8. ALENDRONATE SODIUM [Concomitant]

REACTIONS (6)
  - ABDOMINAL PAIN [None]
  - DIVERTICULUM [None]
  - FLATULENCE [None]
  - INFECTION [None]
  - LARGE INTESTINAL HAEMORRHAGE [None]
  - MYOCARDIAL INFARCTION [None]
